FAERS Safety Report 5115673-8 (Version None)
Quarter: 2006Q3

REPORT INFORMATION
  Report Type: 
  Country: None (occurrence: None)
  Receive Date: 20060926
  Receipt Date: 20060926
  Transmission Date: 20061208
  Serious: Yes (Other)
  Sender: FDA-Public Use
  Company Number: None

PATIENT
  Age: 51 Year
  Sex: Male
  Weight: 95.7 kg

DRUGS (8)
  1. TRAMADOL HCL [Suspect]
  2. DOCUSATE NA [Concomitant]
  3. OMEPRAZOLE [Concomitant]
  4. CLOPIDOGREL BISULFATE [Concomitant]
  5. OLANZAPINE [Concomitant]
  6. FLUOXETINE HCL [Concomitant]
  7. EUCERIN [Concomitant]
  8. NIACIN (NIASPAN-KOS) [Concomitant]

REACTIONS (1)
  - URTICARIA [None]
